FAERS Safety Report 5658897-3 (Version None)
Quarter: 2008Q1

REPORT INFORMATION
  Report Type: 
  Country: None (occurrence: None)
  Receive Date: 20080310
  Receipt Date: 20070628
  Transmission Date: 20080703
  Serious: Yes (Other)
  Sender: FDA-Public Use
  Company Number: US-BAYER-200711331BCC

PATIENT
  Age: 59 Year
  Sex: Female
  Weight: 67 kg

DRUGS (6)
  1. ALEVE [Suspect]
     Indication: BACK PAIN
     Route: 048
     Dates: start: 20070401
  2. VICODIN [Concomitant]
  3. FLEXAR [Concomitant]
  4. HYZAAR [Concomitant]
  5. SYNTHROID [Concomitant]
  6. TRICOR [Concomitant]

REACTIONS (1)
  - BLOOD PRESSURE INCREASED [None]
